FAERS Safety Report 11197898 (Version 1)
Quarter: 2015Q2

REPORT INFORMATION
  Report Type: Spontaneous
  Country: JP (occurrence: JP)
  Receive Date: 20150617
  Receipt Date: 20150617
  Transmission Date: 20150821
  Serious: Yes (Other)
  Sender: FDA-Public Use
  Company Number: PHJP2015JP005794

PATIENT
  Age: 64 Year
  Sex: Male

DRUGS (1)
  1. LAMISIL TAB [Suspect]
     Active Substance: TERBINAFINE HYDROCHLORIDE
     Indication: ONYCHOMYCOSIS
     Dosage: UNK
     Route: 048

REACTIONS (2)
  - Gamma-glutamyltransferase increased [Recovered/Resolved]
  - Blood alkaline phosphatase increased [Recovered/Resolved]

NARRATIVE: CASE EVENT DATE: 20150407
